FAERS Safety Report 10142201 (Version 1)
Quarter: 2014Q2

REPORT INFORMATION
  Report Type: Spontaneous
  Country: US (occurrence: US)
  Receive Date: 20140430
  Receipt Date: 20140430
  Transmission Date: 20141212
  Serious: Yes (Hospitalization)
  Sender: FDA-Public Use
  Company Number: US-SANOFI-AVENTIS-2013SA091615

PATIENT
  Age: 32 Year
  Sex: Female

DRUGS (3)
  1. CLOMID [Suspect]
     Indication: PREGNANCY
     Route: 065
     Dates: start: 20080422
  2. CLOMID [Suspect]
     Indication: PREGNANCY
     Route: 065
     Dates: start: 20080523
  3. VITAMIN B6 [Concomitant]

REACTIONS (9)
  - Deep vein thrombosis [Unknown]
  - Pain in extremity [Unknown]
  - Wheelchair user [Unknown]
  - Condition aggravated [Unknown]
  - Groin pain [Unknown]
  - Oedema peripheral [Unknown]
  - Hormone level abnormal [Unknown]
  - Dyspnoea [Unknown]
  - Drug ineffective [Unknown]
